FAERS Safety Report 22525399 (Version 1)
Quarter: 2023Q2

REPORT INFORMATION
  Report Type: Other
  Country: CN (occurrence: None)
  Receive Date: 20230606
  Receipt Date: 20230606
  Transmission Date: 20230722
  Serious: Yes (Other)
  Sender: FDA-Public Use
  Company Number: CN-ROCHE-3359696

PATIENT
  Age: 59 Year
  Sex: Female

DRUGS (16)
  1. BEVACIZUMAB [Suspect]
     Active Substance: BEVACIZUMAB
     Indication: Colorectal cancer metastatic
     Dosage: FIRST LINE THERAPY
     Route: 065
     Dates: start: 20210313, end: 202105
  2. BEVACIZUMAB [Suspect]
     Active Substance: BEVACIZUMAB
     Indication: Metastasis
     Dosage: SECOND-LINE AND THIRD-LINE THERAPIES
     Route: 065
     Dates: start: 202105
  3. BEVACIZUMAB [Suspect]
     Active Substance: BEVACIZUMAB
     Indication: Metastases to liver
  4. OLAPARIB [Suspect]
     Active Substance: OLAPARIB
     Indication: Colorectal cancer metastatic
     Dosage: SECOND-LINE AND THIRD-LINE THERAPIES
     Route: 065
     Dates: start: 202105
  5. OLAPARIB [Suspect]
     Active Substance: OLAPARIB
     Indication: Metastases to liver
     Route: 065
  6. OLAPARIB [Suspect]
     Active Substance: OLAPARIB
     Indication: Metastasis
     Route: 065
     Dates: start: 202206
  7. TISLELIZUMAB [Suspect]
     Active Substance: TISLELIZUMAB
     Indication: Colorectal cancer metastatic
     Dosage: SECOND-LINE AND THIRD-LINE THERAPIES
     Route: 065
     Dates: start: 202105
  8. TISLELIZUMAB [Suspect]
     Active Substance: TISLELIZUMAB
     Indication: Metastases to liver
  9. TISLELIZUMAB [Suspect]
     Active Substance: TISLELIZUMAB
     Indication: Metastasis
  10. CAPECITABINE [Concomitant]
     Active Substance: CAPECITABINE
     Indication: Colorectal cancer metastatic
     Dosage: FIRST LINE THERAPY WITH 3 COURSES TREATMENT
     Route: 048
     Dates: start: 20210313, end: 202105
  11. CAPECITABINE [Concomitant]
     Active Substance: CAPECITABINE
     Indication: Metastases to liver
  12. CAPECITABINE [Concomitant]
     Active Substance: CAPECITABINE
     Indication: Metastasis
  13. OXALIPLATIN [Concomitant]
     Active Substance: OXALIPLATIN
     Indication: Colorectal cancer metastatic
     Dosage: FIRST LINE THERAPY WITH 3 COURSES TREATMENT
     Dates: start: 20210313, end: 202105
  14. OXALIPLATIN [Concomitant]
     Active Substance: OXALIPLATIN
     Indication: Metastasis
  15. OXALIPLATIN [Concomitant]
     Active Substance: OXALIPLATIN
     Indication: Metastases to liver
  16. ALBUMIN HUMAN [Concomitant]
     Active Substance: ALBUMIN HUMAN

REACTIONS (3)
  - Interstitial lung disease [Unknown]
  - Metastases to liver [Not Recovered/Not Resolved]
  - Anaemia [Unknown]

NARRATIVE: CASE EVENT DATE: 20210801
